FAERS Safety Report 14227505 (Version 1)
Quarter: 2017Q4

REPORT INFORMATION
  Report Type: Spontaneous
  Country: FR (occurrence: FR)
  Receive Date: 20171127
  Receipt Date: 20171127
  Transmission Date: 20180321
  Serious: Yes (Other)
  Sender: FDA-Public Use
  Company Number: FR-MERCK KGAA-2036063

PATIENT
  Sex: Female

DRUGS (1)
  1. NOVOTHYROX [Suspect]
     Active Substance: LEVOTHYROXINE SODIUM
     Indication: HYPOTHYROIDISM

REACTIONS (5)
  - Vomiting in pregnancy [Recovered/Resolved]
  - Hypothyroidism [Recovered/Resolved]
  - Maternal exposure during pregnancy [Unknown]
  - Vomiting [Recovered/Resolved]
  - Weight decreased [Recovered/Resolved]
